FAERS Safety Report 11359711 (Version 3)
Quarter: 2015Q4

REPORT INFORMATION
  Report Type: Report from Study
  Country: US (occurrence: US)
  Receive Date: 20150808
  Receipt Date: 20151031
  Transmission Date: 20160304
  Serious: No
  Sender: FDA-Public Use
  Company Number: PHEH2015US012388

PATIENT
  Sex: Male
  Weight: 97.51 kg

DRUGS (1)
  1. GILENYA [Suspect]
     Active Substance: FINGOLIMOD HYDROCHLORIDE
     Indication: MULTIPLE SCLEROSIS
     Dosage: 0.5 MG, QD
     Route: 048
     Dates: start: 20150428

REACTIONS (5)
  - Feeling hot [Recovering/Resolving]
  - Flatulence [Unknown]
  - Cough [Unknown]
  - Malaise [Recovering/Resolving]
  - Multiple sclerosis relapse [Recovering/Resolving]
